FAERS Safety Report 13561725 (Version 1)
Quarter: 2017Q2

REPORT INFORMATION
  Report Type: Spontaneous
  Country: ES (occurrence: ES)
  Receive Date: 20170518
  Receipt Date: 20170518
  Transmission Date: 20170830
  Serious: Yes (Hospitalization, Disabling)
  Sender: FDA-Public Use
  Company Number: ES-ABBVIE-17P-144-1980665-00

PATIENT
  Age: 58 Year
  Sex: Female

DRUGS (3)
  1. DEPAKINE CRONO [Suspect]
     Active Substance: VALPROIC ACID
     Route: 048
     Dates: start: 201703
  2. DEPAKINE CRONO [Suspect]
     Active Substance: VALPROIC ACID
     Indication: DEPRESSION
     Route: 048
     Dates: start: 201701
  3. DEPAKINE CRONO [Suspect]
     Active Substance: VALPROIC ACID
     Route: 048
     Dates: start: 2017, end: 2017

REACTIONS (7)
  - Gingival disorder [Not Recovered/Not Resolved]
  - Nocturia [Not Recovered/Not Resolved]
  - Weight increased [Not Recovered/Not Resolved]
  - Musculoskeletal stiffness [Not Recovered/Not Resolved]
  - Pain [Not Recovered/Not Resolved]
  - Oedema [Not Recovered/Not Resolved]
  - Pain in jaw [Not Recovered/Not Resolved]

NARRATIVE: CASE EVENT DATE: 201701
